FAERS Safety Report 13806093 (Version 1)
Quarter: 2017Q3

REPORT INFORMATION
  Report Type: Spontaneous
  Country: FR (occurrence: FR)
  Receive Date: 20170728
  Receipt Date: 20170728
  Transmission Date: 20171127
  Serious: Yes (Hospitalization, Other)
  Sender: FDA-Public Use
  Company Number: FR-ABBVIE-17P-056-2050161-00

PATIENT
  Age: 59 Year
  Sex: Male

DRUGS (13)
  1. THERALENE [Suspect]
     Active Substance: TRIMEPRAZINE
     Route: 048
     Dates: start: 20170603, end: 20170604
  2. PREZISTA [Suspect]
     Active Substance: DARUNAVIR ETHANOLATE
     Indication: HIV INFECTION
     Route: 048
     Dates: start: 20070828, end: 20170602
  3. OLANZAPINE MYLAN [Suspect]
     Active Substance: OLANZAPINE
     Route: 048
     Dates: start: 20170603
  4. NORVIR [Suspect]
     Active Substance: RITONAVIR
     Indication: HIV INFECTION
     Dosage: 1-0-1 DF/DAY
     Route: 048
     Dates: start: 20060127, end: 20170602
  5. ISENTRESS [Suspect]
     Active Substance: RALTEGRAVIR POTASSIUM
     Indication: HIV INFECTION
     Route: 048
     Dates: start: 20070828, end: 20170602
  6. OLANZAPINE MYLAN [Suspect]
     Active Substance: OLANZAPINE
     Indication: SCHIZOPHRENIA
     Route: 048
     Dates: start: 2014, end: 20170523
  7. OLANZAPINE MYLAN [Suspect]
     Active Substance: OLANZAPINE
     Route: 048
     Dates: start: 20170524, end: 20170602
  8. THERALENE [Suspect]
     Active Substance: TRIMEPRAZINE
     Route: 048
     Dates: start: 20170605
  9. URBANYL [Concomitant]
     Active Substance: CLOBAZAM
     Indication: PRODUCT USED FOR UNKNOWN INDICATION
  10. THERALENE [Suspect]
     Active Substance: TRIMEPRAZINE
     Indication: PRODUCT USED FOR UNKNOWN INDICATION
     Route: 048
     Dates: start: 20170128, end: 20170602
  11. INTELENCE [Suspect]
     Active Substance: ETRAVIRINE
     Indication: HIV INFECTION
     Dosage: 2-0-2 DF/DAY
     Route: 048
     Dates: start: 20070828, end: 20170602
  12. SULFARLEM [Concomitant]
     Active Substance: ANETHOLTRITHION
     Indication: PRODUCT USED FOR UNKNOWN INDICATION
  13. DEPAKINE CHRONO LP [Concomitant]
     Indication: PRODUCT USED FOR UNKNOWN INDICATION
     Route: 048

REACTIONS (12)
  - Orthostatic hypotension [Recovered/Resolved]
  - Fall [Unknown]
  - Fall [Unknown]
  - Fall [Unknown]
  - Face injury [Unknown]
  - Neurodegenerative disorder [Unknown]
  - Dementia [Unknown]
  - Generalised tonic-clonic seizure [Recovered/Resolved]
  - Fall [Unknown]
  - Cerebral ventricle dilatation [Unknown]
  - Skin injury [Unknown]
  - Cerebral atrophy [Unknown]

NARRATIVE: CASE EVENT DATE: 20170410
